FAERS Safety Report 8078057-9 (Version None)
Quarter: 2012Q1

REPORT INFORMATION
  Report Type: 
  Country: None (occurrence: None)
  Receive Date: 20120127
  Receipt Date: 20110124
  Transmission Date: 20120608
  Serious: No
  Sender: FDA-Public Use
  Company Number: US-ABBOTT-11P-163-0695925-00

PATIENT
  Age: 40 Year
  Sex: Female

DRUGS (3)
  1. HUMIRA [Suspect]
     Indication: PSORIASIS
  2. BIRTH CONTOL PILL [Concomitant]
     Indication: ORAL CONTRACEPTION
     Dosage: DAILY
     Route: 048
  3. HUMIRA [Suspect]
     Indication: PSORIASIS
     Dates: start: 20070101

REACTIONS (5)
  - RASH MACULAR [None]
  - DRUG DOSE OMISSION [None]
  - CONTUSION [None]
  - SKIN HAEMORRHAGE [None]
  - PRURITUS [None]
